FAERS Safety Report 8220790-X (Version None)
Quarter: 2012Q1

REPORT INFORMATION
  Report Type: 
  Country: None (occurrence: None)
  Receive Date: 20120319
  Receipt Date: 20110303
  Transmission Date: 20120608
  Serious: Yes (Hospitalization)
  Sender: FDA-Public Use
  Company Number: PHHO2010TW12932

PATIENT
  Age: 42 Year
  Sex: Female
  Weight: 60 kg

DRUGS (7)
  1. KEPPRA [Suspect]
     Dosage: 900 MG, QD
     Dates: start: 20110128
  2. TRILEPTAL [Suspect]
     Indication: PARTIAL SEIZURES
     Dosage: 300 MG, QID
     Route: 048
     Dates: start: 20040614
  3. KEPPRA [Suspect]
     Indication: PARTIAL SEIZURES
     Dosage: 1200 MG, QD
     Route: 048
     Dates: start: 20090922, end: 20110113
  4. PROPOXYPHENE HYDROCHLORIDE [Concomitant]
     Indication: HEADACHE
  5. ACETAMINOPHEN [Concomitant]
     Indication: HEADACHE
  6. KEPPRA [Suspect]
     Dosage: 1200 MG, QD
     Route: 048
     Dates: start: 20110116
  7. BACLOFEN [Concomitant]
     Indication: HEADACHE

REACTIONS (9)
  - FATIGUE [None]
  - THROMBOCYTOPENIA [None]
  - HYPONATRAEMIA [None]
  - PYREXIA [None]
  - DEHYDRATION [None]
  - MALAISE [None]
  - ACUTE TONSILLITIS [None]
  - OROPHARYNGEAL PAIN [None]
  - LEUKOCYTOSIS [None]
